FAERS Safety Report 10765578 (Version 1)
Quarter: 2015Q1

REPORT INFORMATION
  Report Type: Spontaneous
  Country: US (occurrence: None)
  Receive Date: 20150204
  Receipt Date: 20150204
  Transmission Date: 20150721
  Serious: Yes (Other)
  Sender: FDA-Public Use
  Company Number: None

PATIENT
  Age: 11 Year
  Sex: Male
  Weight: 37.65 kg

DRUGS (3)
  1. RANITIDINE [Concomitant]
     Active Substance: RANITIDINE\RANITIDINE HYDROCHLORIDE
  2. CLONIDINE. [Concomitant]
     Active Substance: CLONIDINE
  3. ARIPIPRAZOLE. [Suspect]
     Active Substance: ARIPIPRAZOLE
     Dosage: 15 MG 1XD TAPERED DOWN TO 2.5 MG 1XD
     Dates: start: 20041004, end: 20041011

REACTIONS (3)
  - Cogwheel rigidity [None]
  - Tremor [None]
  - Extrapyramidal disorder [None]

NARRATIVE: CASE EVENT DATE: 20141009
